FAERS Safety Report 9778869 (Version 1)
Quarter: 2013Q4

REPORT INFORMATION
  Report Type: Spontaneous
  Country: GB (occurrence: GB)
  Receive Date: 20131223
  Receipt Date: 20131223
  Transmission Date: 20140711
  Serious: Yes (Hospitalization)
  Sender: FDA-Public Use
  Company Number: GB-VERTEX PHARMACEUTICALS INC-2013-011964

PATIENT
  Age: 65 Year
  Sex: Male

DRUGS (13)
  1. INCIVO [Suspect]
     Indication: HEPATITIS C
     Dosage: 1125 MG, BID
     Route: 048
     Dates: start: 20130927, end: 20131024
  2. PEGINTERFERON ALFA-2A [Concomitant]
     Dosage: DOSAGE FORM: UNSPECIFIED
     Route: 065
  3. RIBAVIRIN [Concomitant]
     Dosage: DOSAGE FORM: UNSPECIFIED
     Route: 065
  4. AMITRIPTYLINE [Concomitant]
  5. ASPIRIN [Concomitant]
  6. CALCIUM W/VITAMIN D [Concomitant]
  7. COAPROVEL [Concomitant]
  8. LANTUS [Concomitant]
  9. METFORMIN [Concomitant]
  10. NOVORAPID [Concomitant]
  11. QVAR [Concomitant]
  12. ROZEX [Concomitant]
  13. SALBUTAMOL [Concomitant]

REACTIONS (1)
  - Orthostatic hypotension [Recovered/Resolved]
